FAERS Safety Report 8846600 (Version 3)
Quarter: 2013Q3

REPORT INFORMATION
  Report Type: Report from Study
  Country: FR (occurrence: FR)
  Receive Date: 20121017
  Receipt Date: 20130731
  Transmission Date: 20140515
  Serious: Yes (Death)
  Sender: FDA-Public Use
  Company Number: FR-ROCHE-1142929

PATIENT
  Age: 68 Year
  Sex: Male
  Weight: 57 kg

DRUGS (18)
  1. RITUXIMAB [Suspect]
     Indication: MANTLE CELL LYMPHOMA STAGE IV
     Dosage: 3 CYCLES AT 375 MG/ML.
     Route: 042
     Dates: start: 20120622
  2. RITUXIMAB [Suspect]
     Route: 042
     Dates: start: 20120720
  3. RITUXIMAB [Suspect]
     Route: 042
     Dates: start: 20120821, end: 20120821
  4. BENDAMUSTINE [Suspect]
     Indication: MANTLE CELL LYMPHOMA STAGE IV
     Dosage: 3 CYCLES AT 30 MG/M2
     Route: 042
     Dates: start: 20120622
  5. BENDAMUSTINE [Suspect]
     Route: 042
     Dates: start: 20120720
  6. BENDAMUSTINE [Suspect]
     Route: 042
     Dates: start: 20120822, end: 20120822
  7. BORTEZOMIB [Suspect]
     Indication: MANTLE CELL LYMPHOMA STAGE IV
     Dosage: 3 CYCLES AT 1.3 MG/M2
     Route: 058
     Dates: start: 20120622
  8. BORTEZOMIB [Suspect]
     Route: 058
     Dates: start: 20120720
  9. BORTEZOMIB [Suspect]
     Route: 058
     Dates: start: 20120831, end: 20120831
  10. DEXAMETHASONE [Suspect]
     Indication: MANTLE CELL LYMPHOMA STAGE IV
     Dosage: 3 CYCLES
     Route: 042
     Dates: start: 20120622
  11. DEXAMETHASONE [Suspect]
     Route: 042
     Dates: start: 20120720
  12. DEXAMETHASONE [Suspect]
     Route: 042
     Dates: start: 20120821, end: 20120821
  13. VALACICLOVIR [Concomitant]
     Indication: PROPHYLAXIS
     Route: 065
     Dates: start: 20120622
  14. SIMVASTATIN [Concomitant]
     Indication: PROPHYLAXIS
     Route: 065
     Dates: start: 20030911
  15. ZOPICLONE [Concomitant]
     Indication: INSOMNIA
     Route: 065
     Dates: start: 200309
  16. CLOPIDOGREL [Concomitant]
     Indication: PROPHYLAXIS
     Route: 065
     Dates: start: 20030911
  17. CARDEGIC [Concomitant]
     Indication: PROPHYLAXIS
     Route: 065
     Dates: start: 20030911
  18. BISOPROLOL [Concomitant]
     Indication: PROPHYLAXIS
     Route: 048
     Dates: start: 200303

REACTIONS (1)
  - Progressive multifocal leukoencephalopathy [Fatal]
